FAERS Safety Report 9759347 (Version 1)
Quarter: 2013Q4

REPORT INFORMATION
  Report Type: Spontaneous
  Country: US (occurrence: None)
  Receive Date: 20131216
  Receipt Date: 20131216
  Transmission Date: 20140711
  Serious: Yes (Hospitalization, Other)
  Sender: FDA-Public Use
  Company Number: 163-21880-12041453(0)

PATIENT
  Age: 77 Year
  Sex: Female
  Weight: 64 kg

DRUGS (1)
  1. REVLIMID (LENALIDOMIDE) (UNKNOWN) [Suspect]
     Indication: MYELODYSPLASTIC SYNDROME
     Dosage: 5 MG, DAILY FOR 21 DAYS, PO?25 MG, 1 IN 1 D, PO ?10 MG, DAILY 28 DAYS, PO

REACTIONS (3)
  - Tachycardia [None]
  - Cerebrovascular accident [None]
  - Palpitations [None]
